FAERS Safety Report 9513339 (Version 2)
Quarter: 2013Q3

REPORT INFORMATION
  Report Type: Spontaneous
  Country: FR (occurrence: FR)
  Receive Date: 20130910
  Receipt Date: 20130910
  Transmission Date: 20140515
  Serious: Yes (Other)
  Sender: FDA-Public Use
  Company Number: FR-ABBOTT-13P-056-1130034-00

PATIENT
  Age: 38 Year
  Sex: Female
  Weight: 40 kg

DRUGS (1)
  1. HUMIRA [Suspect]
     Indication: CROHN^S DISEASE
     Route: 058
     Dates: start: 201303, end: 201307

REACTIONS (6)
  - Pruritus [Recovered/Resolved]
  - Tachycardia [Recovered/Resolved]
  - Hypertension [Unknown]
  - Pruritus generalised [Recovered/Resolved]
  - Injection site swelling [Unknown]
  - Pruritus [Unknown]
